FAERS Safety Report 6307074-1 (Version None)
Quarter: 2009Q3

REPORT INFORMATION
  Report Type: 
  Country: None (occurrence: None)
  Receive Date: 20090812
  Receipt Date: 20090807
  Transmission Date: 20100115
  Serious: Yes (Other)
  Sender: FDA-Public Use
  Company Number: US-GENENTECH-284856

PATIENT
  Sex: Male
  Weight: 80 kg

DRUGS (13)
  1. RITUXIMAB [Suspect]
     Indication: DIFFUSE LARGE B-CELL LYMPHOMA
     Dosage: UNK
  2. RITUXIMAB [Suspect]
     Indication: DISEASE PROGRESSION
  3. RITUXIMAB [Suspect]
     Indication: DIFFUSE LARGE B-CELL LYMPHOMA RECURRENT
  4. CYCLOPHOSPHAMIDE [Concomitant]
     Indication: DIFFUSE LARGE B-CELL LYMPHOMA
  5. DOXORUBICIN HCL [Concomitant]
     Indication: DIFFUSE LARGE B-CELL LYMPHOMA
  6. VINCRISTINE [Concomitant]
     Indication: DIFFUSE LARGE B-CELL LYMPHOMA
  7. PREDNISONE [Concomitant]
     Indication: DIFFUSE LARGE B-CELL LYMPHOMA
  8. CARMUSTINE [Concomitant]
     Indication: DISEASE PROGRESSION
     Dosage: UNK
     Dates: start: 20070401
  9. ETOPOSIDE [Concomitant]
     Indication: DISEASE PROGRESSION
     Dosage: UNK
     Dates: start: 20070401
  10. CYCLOPHOSPHAMIDE [Concomitant]
     Indication: DISEASE PROGRESSION
     Dosage: UNK
     Dates: start: 20070401
  11. IFOSFAMIDE [Concomitant]
     Indication: DIFFUSE LARGE B-CELL LYMPHOMA RECURRENT
  12. CARBOPLATIN [Concomitant]
     Indication: DIFFUSE LARGE B-CELL LYMPHOMA RECURRENT
  13. ETOPOSIDE [Concomitant]
     Indication: DIFFUSE LARGE B-CELL LYMPHOMA RECURRENT

REACTIONS (1)
  - ENCEPHALITIS [None]
